FAERS Safety Report 6846896-5 (Version None)
Quarter: 2010Q3

REPORT INFORMATION
  Report Type: 
  Country: None (occurrence: None)
  Receive Date: 20100715
  Receipt Date: 20070924
  Transmission Date: 20110219
  Serious: Yes (Hospitalization, Other)
  Sender: FDA-Public Use
  Company Number: US-PFIZER INC-2007080364

PATIENT
  Sex: Female
  Weight: 94.545 kg

DRUGS (9)
  1. CHANTIX [Suspect]
     Indication: SMOKING CESSATION THERAPY
     Dosage: EVERYDAY
     Dates: start: 20070201
  2. METFORMIN HCL [Concomitant]
  3. TRAZODONE HYDROCHLORIDE [Concomitant]
  4. XANAX [Concomitant]
  5. FLEXERIL [Concomitant]
  6. MONTELUKAST SODIUM [Concomitant]
  7. PERCOCET [Concomitant]
  8. CELEXA [Concomitant]
  9. ASPIRIN [Concomitant]

REACTIONS (4)
  - CHOLESTEROSIS [None]
  - DEPRESSION [None]
  - LIVER DISORDER [None]
  - SUICIDAL IDEATION [None]
